FAERS Safety Report 4871865-4 (Version None)
Quarter: 2006Q1

REPORT INFORMATION
  Report Type: 
  Country: None (occurrence: None)
  Receive Date: 20060104
  Receipt Date: 20050916
  Transmission Date: 20060701
  Serious: Yes (Hospitalization, Disabling)
  Sender: FDA-Public Use
  Company Number: US-MERCK-0509USA02467

PATIENT
  Age: 65 Year
  Sex: Male
  Weight: 75 kg

DRUGS (5)
  1. VIOXX [Suspect]
     Indication: OSTEOARTHRITIS
     Route: 048
     Dates: start: 20010801, end: 20040901
  2. NEXIUM [Concomitant]
     Route: 065
  3. PREVACID [Concomitant]
     Route: 065
  4. BEXTRA [Concomitant]
     Route: 065
     Dates: start: 20020101, end: 20020101
  5. LEXAPRO [Concomitant]
     Route: 065
     Dates: start: 20020101

REACTIONS (4)
  - ACUTE MYOCARDIAL INFARCTION [None]
  - CHEST PAIN [None]
  - SHOCK [None]
  - VENTRICULAR TACHYCARDIA [None]
